FAERS Safety Report 9550365 (Version 2)
Quarter: 2016Q4

REPORT INFORMATION
  Report Type: Spontaneous
  Country: US (occurrence: US)
  Receive Date: 20130924
  Receipt Date: 20161007
  Transmission Date: 20170207
  Serious: No
  Sender: FDA-Public Use
  Company Number: US-SANOFI-AVENTIS-2013SA087958

PATIENT
  Age: 46 Year
  Sex: Female

DRUGS (2)
  1. AUBAGIO [Suspect]
     Active Substance: TERIFLUNOMIDE
     Indication: MULTIPLE SCLEROSIS
     Dosage: START DATE - 1.5 MONTHS AGO
     Route: 048
     Dates: start: 20130710
  2. AUBAGIO [Suspect]
     Active Substance: TERIFLUNOMIDE
     Indication: MULTIPLE SCLEROSIS
     Dosage: START DATE - 1.5 MONTHS AGO
     Route: 048
     Dates: start: 20130710

REACTIONS (3)
  - Balance disorder [Not Recovered/Not Resolved]
  - Visual acuity reduced [Unknown]
  - Fatigue [Unknown]

NARRATIVE: CASE EVENT DATE: 20130826
